FAERS Safety Report 4761339-3 (Version None)
Quarter: 2005Q3

REPORT INFORMATION
  Report Type: 
  Country: None (occurrence: None)
  Receive Date: 20050901
  Receipt Date: 20050408
  Transmission Date: 20060218
  Serious: Yes (Hospitalization)
  Sender: FDA-Public Use
  Company Number: 2005FR-00255

PATIENT
  Age: 76 Year
  Sex: Male

DRUGS (5)
  1. ASPIRIN [Suspect]
     Indication: MYOCARDIAL ISCHAEMIA
     Dosage: 75 MG ORAL
     Route: 048
     Dates: start: 20040801, end: 20050201
  2. RANITIDINE [Concomitant]
  3. ATENOLOL [Concomitant]
  4. RAMIPRIL [Concomitant]
  5. ADCAL D3 [Concomitant]

REACTIONS (6)
  - ANAEMIA [None]
  - BARRETT'S OESOPHAGUS [None]
  - GASTROINTESTINAL EROSION [None]
  - HELICOBACTER PYLORI IDENTIFICATION TEST POSITIVE [None]
  - HIATUS HERNIA [None]
  - JAUNDICE [None]
